FAERS Safety Report 22126188 (Version 1)
Quarter: 2023Q1

REPORT INFORMATION
  Report Type: Spontaneous
  Country: US (occurrence: US)
  Receive Date: 20230322
  Receipt Date: 20230322
  Transmission Date: 20230418
  Serious: No
  Sender: FDA-Public Use
  Company Number: US-ALLERGAN-2302734US

PATIENT
  Age: 60 Year
  Sex: Female
  Weight: 54.422 kg

DRUGS (1)
  1. LATISSE [Suspect]
     Active Substance: BIMATOPROST
     Indication: Eyelash thickening
     Dosage: UNK, QHS
     Dates: start: 202212, end: 202212

REACTIONS (4)
  - Dry skin [Recovering/Resolving]
  - Swelling of eyelid [Recovering/Resolving]
  - Erythema of eyelid [Recovering/Resolving]
  - Eye discharge [Recovering/Resolving]

NARRATIVE: CASE EVENT DATE: 20221201
